FAERS Safety Report 8424824-9 (Version None)
Quarter: 2012Q2

REPORT INFORMATION
  Report Type: 
  Country: None (occurrence: None)
  Receive Date: 20120611
  Receipt Date: 20120606
  Transmission Date: 20120825
  Serious: No
  Sender: FDA-Public Use
  Company Number: US-BIOGENIDEC-2012BI020195

PATIENT
  Age: 49 Year
  Sex: Female

DRUGS (1)
  1. TYSABRI [Suspect]
     Indication: MULTIPLE SCLEROSIS
     Route: 042
     Dates: start: 20090403

REACTIONS (7)
  - DIPLOPIA [None]
  - STRESS [None]
  - MULTIPLE SCLEROSIS [None]
  - FATIGUE [None]
  - MACULAR DEGENERATION [None]
  - BLADDER DISORDER [None]
  - TENSION HEADACHE [None]
